FAERS Safety Report 16527167 (Version 1)
Quarter: 2019Q3

REPORT INFORMATION
  Report Type: Report from Study
  Country: US (occurrence: US)
  Receive Date: 20190703
  Receipt Date: 20190703
  Transmission Date: 20191004
  Serious: No
  Sender: FDA-Public Use
  Company Number: US-IPSEN BIOPHARMACEUTICALS, INC.-2019-11058

PATIENT
  Sex: Male

DRUGS (2)
  1. SOMATULINE DEPOT [Suspect]
     Active Substance: LANREOTIDE ACETATE
     Indication: CARCINOID SYNDROME
     Dosage: SITE: UPPER OUTER BUTTOCKS (ROTATE SIDES)
     Route: 058
  2. SOMATULINE DEPOT [Suspect]
     Active Substance: LANREOTIDE ACETATE
     Indication: CARCINOID TUMOUR

REACTIONS (2)
  - Product dose omission [Unknown]
  - Unevaluable event [Unknown]

NARRATIVE: CASE EVENT DATE: 2019
